FAERS Safety Report 11181377 (Version 1)
Quarter: 2015Q2

REPORT INFORMATION
  Report Type: Spontaneous
  Country: US (occurrence: US)
  Receive Date: 20150611
  Receipt Date: 20150611
  Transmission Date: 20150821
  Serious: No
  Sender: FDA-Public Use
  Company Number: US-ENDO PHARMACEUTICALS INC.-LORA20150001

PATIENT
  Sex: Female

DRUGS (1)
  1. LORAZEPAM TABLETS 1MG [Suspect]
     Active Substance: LORAZEPAM
     Indication: ANXIETY
     Dosage: 1/2 TABLET
     Route: 065

REACTIONS (3)
  - Deafness [Unknown]
  - Dyspnoea [Unknown]
  - Reaction to drug excipients [Unknown]
